FAERS Safety Report 24880575 (Version 1)
Quarter: 2025Q1

REPORT INFORMATION
  Report Type: Spontaneous
  Country: CA (occurrence: CA)
  Receive Date: 20250123
  Receipt Date: 20250123
  Transmission Date: 20250408
  Serious: Yes (Other)
  Sender: SANDOZ
  Company Number: CA-SANDOZ-SDZ2025CA004367

PATIENT
  Age: 70 Year
  Sex: Female
  Weight: 80.726 kg

DRUGS (1)
  1. ERELZI [Suspect]
     Active Substance: ETANERCEPT-SZZS
     Indication: Rheumatoid arthritis
     Dosage: 50 MG, QW (PREFILLED SYRINGE WITH NEEDLE GUARD SINGLE USE)
     Route: 058

REACTIONS (3)
  - Blood pressure increased [Unknown]
  - Nausea [Unknown]
  - Product substitution issue [Unknown]
